FAERS Safety Report 6704997-6 (Version None)
Quarter: 2010Q2

REPORT INFORMATION
  Report Type: 
  Country: None (occurrence: None)
  Receive Date: 20100430
  Receipt Date: 20100422
  Transmission Date: 20101027
  Serious: Yes (Other)
  Sender: FDA-Public Use
  Company Number: A0857149A

PATIENT
  Age: 76 Year
  Sex: Female

DRUGS (13)
  1. LANOXIN [Suspect]
     Route: 065
     Dates: start: 20090601
  2. REVATIO [Suspect]
     Indication: PULMONARY HYPERTENSION
     Dosage: 20MG THREE TIMES PER DAY
     Route: 065
     Dates: start: 20090101
  3. TRACLEER [Concomitant]
     Indication: PULMONARY HYPERTENSION
  4. OXYGEN [Concomitant]
  5. PROAIR HFA [Concomitant]
  6. SPIRIVA [Concomitant]
  7. DEMADEX [Concomitant]
  8. COREG [Concomitant]
  9. KLONOPIN [Concomitant]
  10. AMBIEN [Concomitant]
  11. NEXIUM [Concomitant]
  12. DETROL LA [Concomitant]
  13. VALTREX [Concomitant]

REACTIONS (5)
  - CARDIAC FAILURE CONGESTIVE [None]
  - DEAFNESS [None]
  - EAR PAIN [None]
  - HEART VALVE INCOMPETENCE [None]
  - HYPOTENSION [None]
